FAERS Safety Report 5590556-8 (Version None)
Quarter: 2008Q1

REPORT INFORMATION
  Report Type: 
  Country: None (occurrence: None)
  Receive Date: 20080110
  Receipt Date: 20071211
  Transmission Date: 20080703
  Serious: Yes (Death, Hospitalization)
  Sender: FDA-Public Use
  Company Number: GXKR2007US06573

PATIENT
  Age: 66 Year
  Sex: Male

DRUGS (8)
  1. PROPOFOL [Suspect]
     Indication: SEDATION
     Dosage: 30 UG/KG/MIN, INFUSION
  2. METHYLPREDNISOLONE [Suspect]
     Indication: POLYMYOSITIS
     Dosage: 500 MG, INTRAVENOUS
     Route: 042
  3. MYCOPHENOLATE SODIUM (MYCOPHENOLOATE SODIUM) [Concomitant]
  4. PREDNISONE [Suspect]
     Dosage: 7.5 MG; 30 MG
  5. CYCLOSPORINE [Suspect]
     Indication: IMMUNOSUPPRESSION
     Dosage: 150 MG,
  6. SIMVASTATIN [Suspect]
     Dosage: 60 MG; 30 MG
  7. COLCHICUM JTL LIQ [Suspect]
     Dosage: 1.2 MG,
  8. INSULIN (INSULIN) [Concomitant]

REACTIONS (10)
  - HAEMODIALYSIS [None]
  - HYPOREFLEXIA [None]
  - MITOCHONDRIAL MYOPATHY [None]
  - MYOPATHY TOXIC [None]
  - OLIGURIA [None]
  - PNEUMONIA [None]
  - RESPIRATORY DISTRESS [None]
  - RHABDOMYOLYSIS [None]
  - SEPTIC SHOCK [None]
  - WEIGHT DECREASED [None]
